FAERS Safety Report 15744337 (Version 1)
Quarter: 2018Q4

REPORT INFORMATION
  Report Type: Spontaneous
  Country: US (occurrence: US)
  Receive Date: 20181205
  Receipt Date: 20181205
  Transmission Date: 20190205
  Serious: Yes (Hospitalization)
  Sender: FDA-Public Use
  Company Number: None

PATIENT
  Age: 36 Year
  Sex: Female

DRUGS (8)
  1. ENVARSUS XR [Concomitant]
     Active Substance: TACROLIMUS
  2. CAPECITABINE 500MG  TAB [Suspect]
     Active Substance: CAPECITABINE
     Indication: COLON CANCER
     Route: 048
     Dates: start: 20181003
  3. METOPROL NITROFURANTN [Concomitant]
  4. CAPECITABINE 500MG  TAB [Suspect]
     Active Substance: CAPECITABINE
     Indication: COLON CANCER
     Route: 048
     Dates: start: 20181003
  5. AMLODIPINE [Concomitant]
     Active Substance: AMLODIPINE BESYLATE
  6. NYSTATIN. [Concomitant]
     Active Substance: NYSTATIN
  7. OLANZAPINE. [Concomitant]
     Active Substance: OLANZAPINE
  8. ACYCLOVIR. [Concomitant]
     Active Substance: ACYCLOVIR

REACTIONS (1)
  - Palmar-plantar erythrodysaesthesia syndrome [None]
